FAERS Safety Report 5147652-9 (Version None)
Quarter: 2006Q4

REPORT INFORMATION
  Report Type: 
  Country: None (occurrence: None)
  Receive Date: 20060915
  Receipt Date: 20060627
  Transmission Date: 20070319
  Serious: Yes (Other)
  Sender: FDA-Public Use
  Company Number: S06-USA-02487-01

PATIENT
  Age: 41 Year
  Sex: Male

DRUGS (3)
  1. CELEXA [Suspect]
     Indication: DEPRESSION
     Dosage: 40 MG QD PO
     Route: 048
  2. PEG-INTRON [Suspect]
     Indication: HEPATITIS C
     Dates: start: 20060128
  3. RIBASPHERE [Suspect]
     Indication: HEPATITIS C
     Dates: start: 20060128

REACTIONS (4)
  - DEPRESSION [None]
  - FRUSTRATION [None]
  - INSOMNIA [None]
  - SUICIDAL IDEATION [None]
